FAERS Safety Report 7533933-8 (Version None)
Quarter: 2011Q2

REPORT INFORMATION
  Report Type: 
  Country: None (occurrence: None)
  Receive Date: 20110608
  Receipt Date: 20060713
  Transmission Date: 20111010
  Serious: Yes (Other)
  Sender: FDA-Public Use
  Company Number: PHHO2006BR11536

PATIENT
  Age: 66 Year
  Sex: Female

DRUGS (5)
  1. LEXAPRO [Concomitant]
  2. TRILEPTAL [Concomitant]
  3. PAMELOR [Concomitant]
  4. DEPAKOTE [Suspect]
  5. DIOVAN [Suspect]
     Dosage: 160 MG, UNK
     Route: 048

REACTIONS (3)
  - HEPATITIS [None]
  - RENAL DISORDER [None]
  - DENGUE FEVER [None]
